FAERS Safety Report 21951240 (Version 2)
Quarter: 2024Q4

REPORT INFORMATION
  Report Type: Spontaneous
  Country: US (occurrence: US)
  Receive Date: 20230203
  Receipt Date: 20241230
  Transmission Date: 20250114
  Serious: No
  Sender: SANOFI AVENTIS
  Company Number: US-SA-SAC20230201001347

PATIENT
  Age: 80 Year
  Sex: Female

DRUGS (5)
  1. DUPIXENT [Suspect]
     Active Substance: DUPILUMAB
     Indication: Dermatitis atopic
     Dosage: 300 MG, QOW
     Route: 058
     Dates: start: 20220120
  2. DUPIXENT [Suspect]
     Active Substance: DUPILUMAB
     Indication: Chronic myeloid leukaemia
  3. DUPIXENT [Suspect]
     Active Substance: DUPILUMAB
     Indication: Philadelphia chromosome positive
  4. IMATINIB [Suspect]
     Active Substance: IMATINIB
     Dosage: UNK
     Dates: start: 202301
  5. VITAMIN B COMPLEX [DEXPANTHENOL;NICOTINAMIDE;PYRIDOXINE HYDROCHLORIDE; [Concomitant]

REACTIONS (3)
  - Fatigue [Unknown]
  - Asthenia [Unknown]
  - Product use in unapproved indication [Unknown]

NARRATIVE: CASE EVENT DATE: 20230101
